FAERS Safety Report 20870795 (Version 1)
Quarter: 2022Q2

REPORT INFORMATION
  Report Type: Report from Study
  Country: RO (occurrence: RO)
  Receive Date: 20220525
  Receipt Date: 20220525
  Transmission Date: 20220721
  Serious: Yes (Death, Other)
  Sender: FDA-Public Use
  Company Number: RO-ABBVIE-22K-135-4409000-00

PATIENT
  Age: 66 Year
  Sex: Female

DRUGS (2)
  1. CARBIDOPA\LEVODOPA [Suspect]
     Active Substance: CARBIDOPA\LEVODOPA
     Indication: Parkinson^s disease
     Dosage: DM=10.00 DC=3.10 ED=1.50 NRED=2; DMN=0.00 DCN=0.00 EDN=0.00 NREDN=0
     Route: 050
     Dates: start: 20181105, end: 20220521
  2. CARBIDOPA\LEVODOPA [Suspect]
     Active Substance: CARBIDOPA\LEVODOPA

REACTIONS (5)
  - Cardio-respiratory arrest [Fatal]
  - Fatigue [Fatal]
  - Vomiting [Fatal]
  - Nausea [Fatal]
  - Malaise [Fatal]

NARRATIVE: CASE EVENT DATE: 20220521
